FAERS Safety Report 5500973-X (Version None)
Quarter: 2007Q4

REPORT INFORMATION
  Report Type: 
  Country: None (occurrence: None)
  Receive Date: 20071029
  Receipt Date: 20071024
  Transmission Date: 20080405
  Serious: Yes (Life-Threatening, Hospitalization, Other)
  Sender: FDA-Public Use
  Company Number: PHRM2007FR02455

PATIENT
  Sex: Male

DRUGS (5)
  1. TEGRETOL [Suspect]
     Dosage: MATERNAL DOSE: 400 MG/DAY
     Route: 064
  2. SYNTOCINON [Suspect]
     Dosage: MATERNAL DOSAGE: UNKNOWN
     Route: 064
  3. SPASFON [Suspect]
     Dosage: MATERNAL DOSAGE: UNKNWON
     Route: 064
  4. CLAMOXYL /SCH/ [Suspect]
     Dosage: MATERNAL DOSAGE: UNKNOWN
     Route: 064
  5. BUPIVACAINE [Suspect]
     Dosage: MATERNAL DOSAGE: UNKNOWN
     Route: 064

REACTIONS (6)
  - APNOEA [None]
  - CARDIAC ARREST [None]
  - CARDIAC MURMUR [None]
  - DRUG EXPOSURE DURING PREGNANCY [None]
  - PULMONARY VALVE STENOSIS [None]
  - RESUSCITATION [None]
